FAERS Safety Report 17054617 (Version 1)
Quarter: 2019Q4

REPORT INFORMATION
  Report Type: Report from Study
  Country: CA (occurrence: CA)
  Receive Date: 20191120
  Receipt Date: 20191120
  Transmission Date: 20200122
  Serious: Yes (Other)
  Sender: FDA-Public Use
  Company Number: CA-UCBSA-2019047917

PATIENT
  Age: 65 Year
  Sex: Female

DRUGS (1)
  1. CERTOLIZUMAB PEGOL AUTOCLICKS [Suspect]
     Active Substance: CERTOLIZUMAB PEGOL
     Indication: RHEUMATOID ARTHRITIS
     Dosage: 400 MILLIGRAM, EV 2 WEEKS(QOW)
     Route: 058
     Dates: start: 20191108, end: 20191108

REACTIONS (4)
  - Lip oedema [Recovering/Resolving]
  - Pruritus [Recovering/Resolving]
  - Vulvovaginal pruritus [Recovering/Resolving]
  - Erythema [Recovering/Resolving]

NARRATIVE: CASE EVENT DATE: 20191108
